FAERS Safety Report 22376974 (Version 14)
Quarter: 2025Q2

REPORT INFORMATION
  Report Type: Spontaneous
  Country: CA (occurrence: CA)
  Receive Date: 20230529
  Receipt Date: 20250521
  Transmission Date: 20250716
  Serious: Yes (Hospitalization, Other)
  Sender: CELLTRION
  Company Number: CA-CELLTRION INC.-2023CA010718

PATIENT

DRUGS (233)
  1. RITUXIMAB [Suspect]
     Active Substance: RITUXIMAB
     Indication: Product used for unknown indication
     Route: 065
  2. RITUXIMAB [Suspect]
     Active Substance: RITUXIMAB
     Route: 042
  3. RITUXIMAB [Suspect]
     Active Substance: RITUXIMAB
     Route: 041
  4. RITUXIMAB [Suspect]
     Active Substance: RITUXIMAB
     Route: 065
  5. RITUXIMAB [Suspect]
     Active Substance: RITUXIMAB
     Route: 042
  6. BEVACIZUMAB [Suspect]
     Active Substance: BEVACIZUMAB
     Indication: Product used for unknown indication
     Route: 065
  7. BEVACIZUMAB [Suspect]
     Active Substance: BEVACIZUMAB
     Route: 065
  8. BEVACIZUMAB [Suspect]
     Active Substance: BEVACIZUMAB
     Route: 065
  9. BEVACIZUMAB [Suspect]
     Active Substance: BEVACIZUMAB
     Route: 065
  10. BEVACIZUMAB [Suspect]
     Active Substance: BEVACIZUMAB
     Route: 065
  11. BEVACIZUMAB [Suspect]
     Active Substance: BEVACIZUMAB
     Route: 065
  12. HYDRALAZINE [Suspect]
     Active Substance: HYDRALAZINE HYDROCHLORIDE
     Indication: Hypertensive crisis
     Route: 065
  13. HYDRALAZINE [Suspect]
     Active Substance: HYDRALAZINE HYDROCHLORIDE
     Route: 065
  14. HYDRALAZINE [Suspect]
     Active Substance: HYDRALAZINE HYDROCHLORIDE
     Indication: Hypertensive crisis
     Route: 065
  15. OMALIZUMAB [Suspect]
     Active Substance: OMALIZUMAB
     Indication: Asthma
     Dosage: 225 MILLIGRAM, 1 EVERY 2 WEEKS
     Route: 058
  16. OMALIZUMAB [Suspect]
     Active Substance: OMALIZUMAB
     Route: 065
  17. OMALIZUMAB [Suspect]
     Active Substance: OMALIZUMAB
     Route: 065
  18. OMALIZUMAB [Suspect]
     Active Substance: OMALIZUMAB
     Route: 058
  19. OMALIZUMAB [Suspect]
     Active Substance: OMALIZUMAB
     Route: 058
  20. OMALIZUMAB [Suspect]
     Active Substance: OMALIZUMAB
     Dosage: 225 MILLIGRAM, 1 EVERY 2 WEEKS
     Route: 058
  21. OMALIZUMAB [Suspect]
     Active Substance: OMALIZUMAB
     Dosage: 225 MILLIGRAM, 1 EVERY 2 WEEKS
     Route: 058
  22. OMALIZUMAB [Suspect]
     Active Substance: OMALIZUMAB
     Dosage: 225 MILLIGRAM, 1 EVERY 2 WEEKS
     Route: 058
  23. OMALIZUMAB [Suspect]
     Active Substance: OMALIZUMAB
     Dosage: 225 MILLIGRAM, 2 EVERY 1 WEEKS
     Route: 058
  24. OMALIZUMAB [Suspect]
     Active Substance: OMALIZUMAB
     Route: 058
  25. OMALIZUMAB [Suspect]
     Active Substance: OMALIZUMAB
     Route: 058
  26. OMALIZUMAB [Suspect]
     Active Substance: OMALIZUMAB
     Dosage: 225 MILLIGRAM, 1 EVERY 2 WEEKS
     Route: 058
  27. OMALIZUMAB [Suspect]
     Active Substance: OMALIZUMAB
     Dosage: 225 MILLIGRAM, 1 EVERY 2 WEEKS
     Route: 058
  28. OMALIZUMAB [Suspect]
     Active Substance: OMALIZUMAB
     Route: 058
  29. OMALIZUMAB [Suspect]
     Active Substance: OMALIZUMAB
     Dosage: 225 MILLIGRAM, 1 EVERY 2 WEEKS
     Route: 058
  30. OMALIZUMAB [Suspect]
     Active Substance: OMALIZUMAB
     Dosage: 225 MILLIGRAM, 1 EVERY 2 WEEKS
     Route: 058
  31. OMALIZUMAB [Suspect]
     Active Substance: OMALIZUMAB
     Dosage: 225 MILLIGRAM, 1 EVERY 2 WEEKS
     Route: 058
  32. OMALIZUMAB [Suspect]
     Active Substance: OMALIZUMAB
     Dosage: 225 MILLIGRAM, 1 EVERY 2 WEEKS
     Route: 058
  33. OMALIZUMAB [Suspect]
     Active Substance: OMALIZUMAB
     Dosage: 225 MILLIGRAM, 1 EVERY 2 WEEKS
     Route: 058
  34. OMALIZUMAB [Suspect]
     Active Substance: OMALIZUMAB
     Route: 058
  35. OMALIZUMAB [Suspect]
     Active Substance: OMALIZUMAB
     Dosage: 225 MILLIGRAM, 1 EVERY 2 WEEKS
     Route: 058
  36. OMALIZUMAB [Suspect]
     Active Substance: OMALIZUMAB
     Dosage: 225 MG
     Route: 058
  37. OMALIZUMAB [Suspect]
     Active Substance: OMALIZUMAB
     Dosage: 225 MILLIGRAM, 1 EVERY 2 WEEKS
     Route: 058
  38. OMALIZUMAB [Suspect]
     Active Substance: OMALIZUMAB
     Dosage: 225 MILLIGRAM, 1 EVERY 2 WEEKS
     Route: 058
  39. OMALIZUMAB [Suspect]
     Active Substance: OMALIZUMAB
     Dosage: 225 MILLIGRAM, 1 EVERY 2 WEEKS
     Route: 058
  40. OMALIZUMAB [Suspect]
     Active Substance: OMALIZUMAB
     Dosage: 225 MILLIGRAM, 1 EVERY 2 WEEKS
     Route: 058
  41. OMALIZUMAB [Suspect]
     Active Substance: OMALIZUMAB
     Dosage: 225 MILLIGRAM, 2 EVERY 1 WEEKS
     Route: 058
  42. OMALIZUMAB [Suspect]
     Active Substance: OMALIZUMAB
     Dosage: 225 MILLIGRAM, 1 EVERY 2 WEEKS
     Route: 058
  43. OMALIZUMAB [Suspect]
     Active Substance: OMALIZUMAB
     Dosage: 225 MILLIGRAM, 1 EVERY 2 WEEKS
     Route: 058
  44. OMALIZUMAB [Suspect]
     Active Substance: OMALIZUMAB
     Dosage: 225 MILLIGRAM, 1 EVERY 2 WEEKS
     Route: 058
  45. OMALIZUMAB [Suspect]
     Active Substance: OMALIZUMAB
     Dosage: 225 MILLIGRAM, 1 EVERY 2 WEEKS
     Route: 058
  46. OMALIZUMAB [Suspect]
     Active Substance: OMALIZUMAB
     Route: 058
  47. OMALIZUMAB [Suspect]
     Active Substance: OMALIZUMAB
     Route: 058
  48. OMALIZUMAB [Suspect]
     Active Substance: OMALIZUMAB
     Route: 058
  49. OMALIZUMAB [Suspect]
     Active Substance: OMALIZUMAB
     Route: 058
  50. OMALIZUMAB [Suspect]
     Active Substance: OMALIZUMAB
     Route: 058
  51. OMALIZUMAB [Suspect]
     Active Substance: OMALIZUMAB
     Route: 058
  52. OMALIZUMAB [Suspect]
     Active Substance: OMALIZUMAB
     Route: 058
  53. OMALIZUMAB [Suspect]
     Active Substance: OMALIZUMAB
     Route: 058
  54. OMALIZUMAB [Suspect]
     Active Substance: OMALIZUMAB
     Route: 058
  55. OMALIZUMAB [Suspect]
     Active Substance: OMALIZUMAB
     Route: 058
  56. OMALIZUMAB [Suspect]
     Active Substance: OMALIZUMAB
     Route: 058
  57. OMALIZUMAB [Suspect]
     Active Substance: OMALIZUMAB
     Route: 058
  58. OMALIZUMAB [Suspect]
     Active Substance: OMALIZUMAB
     Route: 058
  59. OMALIZUMAB [Suspect]
     Active Substance: OMALIZUMAB
     Route: 058
  60. OMALIZUMAB [Suspect]
     Active Substance: OMALIZUMAB
     Route: 058
  61. OMALIZUMAB [Suspect]
     Active Substance: OMALIZUMAB
     Route: 058
  62. OMALIZUMAB [Suspect]
     Active Substance: OMALIZUMAB
     Route: 058
  63. OMALIZUMAB [Suspect]
     Active Substance: OMALIZUMAB
     Route: 058
  64. OMALIZUMAB [Suspect]
     Active Substance: OMALIZUMAB
     Route: 058
  65. OMALIZUMAB [Suspect]
     Active Substance: OMALIZUMAB
     Indication: Asthma
     Dosage: 225 MILLIGRAM, 1 EVERY 2 WEEKS
     Route: 058
  66. OMALIZUMAB [Suspect]
     Active Substance: OMALIZUMAB
     Dosage: 225 MILLIGRAM, 2 EVERY 1 WEEKS
     Route: 058
  67. OMALIZUMAB [Suspect]
     Active Substance: OMALIZUMAB
     Indication: Asthma
     Route: 065
  68. OMALIZUMAB [Suspect]
     Active Substance: OMALIZUMAB
     Route: 065
  69. OMALIZUMAB [Suspect]
     Active Substance: OMALIZUMAB
     Dosage: 225 MILLIGRAM, 1 EVERY 2 WEEKS
     Route: 058
  70. OMALIZUMAB [Suspect]
     Active Substance: OMALIZUMAB
     Route: 058
  71. OMALIZUMAB [Suspect]
     Active Substance: OMALIZUMAB
     Route: 065
  72. OMALIZUMAB [Suspect]
     Active Substance: OMALIZUMAB
     Dosage: 225 MILLIGRAM, 1 EVERY 2 WEEKS
     Route: 058
  73. OMALIZUMAB [Suspect]
     Active Substance: OMALIZUMAB
     Dosage: 225 MILLIGRAM, 1 EVERY 2 WEEKS
     Route: 058
  74. OMALIZUMAB [Suspect]
     Active Substance: OMALIZUMAB
     Dosage: 225 MILLIGRAM, 1 EVERY 2 WEEKS
     Route: 058
  75. OMALIZUMAB [Suspect]
     Active Substance: OMALIZUMAB
     Dosage: 225 MILLIGRAM, 1 EVERY 2 WEEKS
     Route: 065
  76. OMALIZUMAB [Suspect]
     Active Substance: OMALIZUMAB
     Dosage: 225 MILLIGRAM, 1 EVERY 2 WEEKS
     Route: 058
  77. OMALIZUMAB [Suspect]
     Active Substance: OMALIZUMAB
     Dosage: 225 MILLIGRAM, 1 EVERY 2 WEEKS
     Route: 058
  78. OMALIZUMAB [Suspect]
     Active Substance: OMALIZUMAB
     Route: 058
  79. OMALIZUMAB [Suspect]
     Active Substance: OMALIZUMAB
     Route: 058
  80. OMALIZUMAB [Suspect]
     Active Substance: OMALIZUMAB
     Dosage: 225 MILLIGRAM, 1 EVERY 2 WEEKS
     Route: 058
  81. OMALIZUMAB [Suspect]
     Active Substance: OMALIZUMAB
     Dosage: 225 MILLIGRAM, 1 EVERY 2 WEEKS
     Route: 058
  82. OMALIZUMAB [Suspect]
     Active Substance: OMALIZUMAB
     Dosage: 225 MILLIGRAM, 1 EVERY 2 WEEKS
     Route: 058
  83. OMALIZUMAB [Suspect]
     Active Substance: OMALIZUMAB
     Dosage: 225 MILLIGRAM, 1 EVERY 2 WEEKS
     Route: 058
  84. OMALIZUMAB [Suspect]
     Active Substance: OMALIZUMAB
     Dosage: 225 MILLIGRAM, 1 EVERY 2 WEEKS
     Route: 058
  85. OMALIZUMAB [Suspect]
     Active Substance: OMALIZUMAB
     Dosage: 225 MILLIGRAM, 1 EVERY 2 WEEKS
     Route: 058
  86. OMALIZUMAB [Suspect]
     Active Substance: OMALIZUMAB
     Dosage: 225 MILLIGRAM, 1 EVERY 2 WEEKS
     Route: 058
  87. OMALIZUMAB [Suspect]
     Active Substance: OMALIZUMAB
     Route: 058
  88. OMALIZUMAB [Suspect]
     Active Substance: OMALIZUMAB
     Dosage: 225 MILLIGRAM, 1 EVERY 2 WEEKS
     Route: 058
  89. OMALIZUMAB [Suspect]
     Active Substance: OMALIZUMAB
     Dosage: 225 MILLIGRAM, 1 EVERY 2 WEEKS
     Route: 058
  90. OMALIZUMAB [Suspect]
     Active Substance: OMALIZUMAB
     Dosage: 225 MILLIGRAM, 1 EVERY 2 WEEKS
     Route: 058
  91. OMALIZUMAB [Suspect]
     Active Substance: OMALIZUMAB
     Dosage: 225 MILLIGRAM, 1 EVERY 2 WEEKS
     Route: 058
  92. OMALIZUMAB [Suspect]
     Active Substance: OMALIZUMAB
     Route: 058
  93. OMALIZUMAB [Suspect]
     Active Substance: OMALIZUMAB
     Dosage: 225 MILLIGRAM, 1 EVERY 2 WEEKS
     Route: 058
  94. OMALIZUMAB [Suspect]
     Active Substance: OMALIZUMAB
     Dosage: 225 MILLIGRAM, 1 EVERY 2 WEEKS
     Route: 058
  95. OMALIZUMAB [Suspect]
     Active Substance: OMALIZUMAB
     Dosage: 225 MILLIGRAM, 1 EVERY 2 WEEKS
     Route: 058
  96. OMALIZUMAB [Suspect]
     Active Substance: OMALIZUMAB
     Route: 058
  97. OMALIZUMAB [Suspect]
     Active Substance: OMALIZUMAB
     Dosage: 225 MILLIGRAM, 1 EVERY 2 WEEKS
     Route: 058
  98. OMALIZUMAB [Suspect]
     Active Substance: OMALIZUMAB
     Dosage: 225 MILLIGRAM, 1 EVERY 2 WEEKS
     Route: 058
  99. OMALIZUMAB [Suspect]
     Active Substance: OMALIZUMAB
     Dosage: 225 MILLIGRAM, 2 EVERY 1 WEEKS
     Route: 058
  100. OMALIZUMAB [Suspect]
     Active Substance: OMALIZUMAB
     Dosage: 225 MILLIGRAM, 2 EVERY 1 WEEKS
     Route: 058
  101. OMALIZUMAB [Suspect]
     Active Substance: OMALIZUMAB
     Dosage: 225 MILLIGRAM, 2 EVERY 1 WEEKS
     Route: 058
  102. OMALIZUMAB [Suspect]
     Active Substance: OMALIZUMAB
     Dosage: 225 MILLIGRAM, 2 EVERY 1 WEEKS
     Route: 058
  103. OMALIZUMAB [Suspect]
     Active Substance: OMALIZUMAB
     Dosage: 225 MILLIGRAM, 2 EVERY 1 WEEKS
     Route: 058
  104. OMALIZUMAB [Suspect]
     Active Substance: OMALIZUMAB
     Dosage: 225 MILLIGRAM, 2 EVERY 1 WEEKS
     Route: 058
  105. OMALIZUMAB [Suspect]
     Active Substance: OMALIZUMAB
     Dosage: 225 MILLIGRAM, 2 EVERY 1 WEEKS
     Route: 058
  106. OMALIZUMAB [Suspect]
     Active Substance: OMALIZUMAB
     Dosage: 225 MILLIGRAM, 2 EVERY 1 WEEKS
     Route: 058
  107. OMALIZUMAB [Suspect]
     Active Substance: OMALIZUMAB
     Dosage: 225 MILLIGRAM, 2 EVERY 1 WEEKS
     Route: 058
  108. OMALIZUMAB [Suspect]
     Active Substance: OMALIZUMAB
     Dosage: 225 MILLIGRAM, 2 EVERY 1 WEEKS
     Route: 058
  109. OMALIZUMAB [Suspect]
     Active Substance: OMALIZUMAB
     Dosage: 225 MILLIGRAM, 2 EVERY 1 WEEKS
     Route: 058
  110. OMALIZUMAB [Suspect]
     Active Substance: OMALIZUMAB
     Dosage: 225 MILLIGRAM, 2 EVERY 1 WEEKS
     Route: 058
  111. OMALIZUMAB [Suspect]
     Active Substance: OMALIZUMAB
     Dosage: 225 MILLIGRAM, 2 EVERY 1 WEEKS
     Route: 058
  112. OMALIZUMAB [Suspect]
     Active Substance: OMALIZUMAB
     Dosage: 225 MILLIGRAM, 2 EVERY 1 WEEKS
     Route: 058
  113. OMALIZUMAB [Suspect]
     Active Substance: OMALIZUMAB
     Dosage: 225 MILLIGRAM, 2 EVERY 1 WEEKS
     Route: 058
  114. OMALIZUMAB [Suspect]
     Active Substance: OMALIZUMAB
     Dosage: 225 MILLIGRAM, 2 EVERY 1 WEEKS
     Route: 058
  115. OMALIZUMAB [Suspect]
     Active Substance: OMALIZUMAB
     Dosage: 225 MILLIGRAM, 2 EVERY 1 WEEKS
     Route: 058
  116. OMALIZUMAB [Suspect]
     Active Substance: OMALIZUMAB
     Dosage: 225 MILLIGRAM, 2 EVERY 1 WEEKS
     Route: 058
  117. OMALIZUMAB [Suspect]
     Active Substance: OMALIZUMAB
     Indication: Asthma
     Dosage: 225 MILLIGRAM, 2 EVERY 1 WEEKS
     Route: 058
  118. OMALIZUMAB [Suspect]
     Active Substance: OMALIZUMAB
     Dosage: 225 MILLIGRAM, 2 EVERY 1 WEEKS
     Route: 058
  119. OMALIZUMAB [Suspect]
     Active Substance: OMALIZUMAB
     Dosage: 225 MILLIGRAM, 2 EVERY 1 WEEKS
     Route: 058
  120. OMALIZUMAB [Suspect]
     Active Substance: OMALIZUMAB
     Dosage: 225 MILLIGRAM, 2 EVERY 1 WEEKS
     Route: 058
  121. OMALIZUMAB [Suspect]
     Active Substance: OMALIZUMAB
     Dosage: 225 MILLIGRAM, 2 EVERY 1 WEEKS
     Route: 065
  122. OMALIZUMAB [Suspect]
     Active Substance: OMALIZUMAB
     Indication: Asthma
     Route: 058
  123. OMALIZUMAB [Suspect]
     Active Substance: OMALIZUMAB
     Route: 058
  124. OMALIZUMAB [Suspect]
     Active Substance: OMALIZUMAB
     Route: 058
  125. OMALIZUMAB [Suspect]
     Active Substance: OMALIZUMAB
     Route: 058
  126. OMALIZUMAB [Suspect]
     Active Substance: OMALIZUMAB
     Route: 058
  127. OMALIZUMAB [Suspect]
     Active Substance: OMALIZUMAB
     Route: 058
  128. OMALIZUMAB [Suspect]
     Active Substance: OMALIZUMAB
     Route: 058
  129. OMALIZUMAB [Suspect]
     Active Substance: OMALIZUMAB
     Route: 058
  130. OMALIZUMAB [Suspect]
     Active Substance: OMALIZUMAB
     Route: 058
  131. OMALIZUMAB [Suspect]
     Active Substance: OMALIZUMAB
     Route: 058
  132. OMALIZUMAB [Suspect]
     Active Substance: OMALIZUMAB
     Route: 058
  133. OMALIZUMAB [Suspect]
     Active Substance: OMALIZUMAB
     Route: 058
  134. OMALIZUMAB [Suspect]
     Active Substance: OMALIZUMAB
     Route: 058
  135. OMALIZUMAB [Suspect]
     Active Substance: OMALIZUMAB
     Route: 058
  136. OMALIZUMAB [Suspect]
     Active Substance: OMALIZUMAB
     Route: 058
  137. OMALIZUMAB [Suspect]
     Active Substance: OMALIZUMAB
     Route: 058
  138. OMALIZUMAB [Suspect]
     Active Substance: OMALIZUMAB
     Route: 058
  139. OMALIZUMAB [Suspect]
     Active Substance: OMALIZUMAB
     Route: 058
  140. OMALIZUMAB [Suspect]
     Active Substance: OMALIZUMAB
     Route: 058
  141. OMALIZUMAB [Suspect]
     Active Substance: OMALIZUMAB
     Route: 058
  142. OMALIZUMAB [Suspect]
     Active Substance: OMALIZUMAB
     Route: 058
  143. OMALIZUMAB [Suspect]
     Active Substance: OMALIZUMAB
     Route: 058
  144. OMALIZUMAB [Suspect]
     Active Substance: OMALIZUMAB
     Route: 058
  145. OMALIZUMAB [Suspect]
     Active Substance: OMALIZUMAB
     Route: 065
  146. OMALIZUMAB [Suspect]
     Active Substance: OMALIZUMAB
     Route: 065
  147. OMALIZUMAB [Suspect]
     Active Substance: OMALIZUMAB
     Route: 058
  148. OMALIZUMAB [Suspect]
     Active Substance: OMALIZUMAB
     Route: 058
  149. OMALIZUMAB [Suspect]
     Active Substance: OMALIZUMAB
     Route: 058
  150. OMALIZUMAB [Suspect]
     Active Substance: OMALIZUMAB
     Route: 058
  151. OMALIZUMAB [Suspect]
     Active Substance: OMALIZUMAB
     Route: 058
  152. OMALIZUMAB [Suspect]
     Active Substance: OMALIZUMAB
     Route: 058
  153. OMALIZUMAB [Suspect]
     Active Substance: OMALIZUMAB
     Route: 058
  154. OMALIZUMAB [Suspect]
     Active Substance: OMALIZUMAB
     Dosage: 225 MILLIGRAM, 1 EVERY 2 WEEKS
     Route: 058
  155. OMALIZUMAB [Suspect]
     Active Substance: OMALIZUMAB
     Dosage: 225 MILLIGRAM, 1 EVERY 2 WEEKS
     Route: 058
  156. OMALIZUMAB [Suspect]
     Active Substance: OMALIZUMAB
     Indication: Asthma
     Route: 065
  157. OMALIZUMAB [Suspect]
     Active Substance: OMALIZUMAB
     Route: 065
  158. OMALIZUMAB [Suspect]
     Active Substance: OMALIZUMAB
     Route: 058
  159. OMALIZUMAB [Suspect]
     Active Substance: OMALIZUMAB
     Route: 058
  160. OMALIZUMAB [Suspect]
     Active Substance: OMALIZUMAB
     Route: 058
  161. OMALIZUMAB [Suspect]
     Active Substance: OMALIZUMAB
     Route: 058
  162. OMALIZUMAB [Suspect]
     Active Substance: OMALIZUMAB
     Route: 058
  163. OMALIZUMAB [Suspect]
     Active Substance: OMALIZUMAB
     Route: 058
  164. OMALIZUMAB [Suspect]
     Active Substance: OMALIZUMAB
     Route: 058
  165. OMALIZUMAB [Suspect]
     Active Substance: OMALIZUMAB
     Dosage: 225 MILLIGRAM, 2 EVERY 1 WEEKS
     Route: 058
  166. OMALIZUMAB [Suspect]
     Active Substance: OMALIZUMAB
     Dosage: 225 MILLIGRAM, 2 EVERY 1 WEEKS
     Route: 058
  167. OMALIZUMAB [Suspect]
     Active Substance: OMALIZUMAB
     Route: 058
  168. OMALIZUMAB [Suspect]
     Active Substance: OMALIZUMAB
     Route: 058
  169. OMALIZUMAB [Suspect]
     Active Substance: OMALIZUMAB
     Route: 058
  170. OMALIZUMAB [Suspect]
     Active Substance: OMALIZUMAB
     Route: 058
  171. OMALIZUMAB [Suspect]
     Active Substance: OMALIZUMAB
     Route: 058
  172. OMALIZUMAB [Suspect]
     Active Substance: OMALIZUMAB
     Route: 058
  173. OMALIZUMAB [Suspect]
     Active Substance: OMALIZUMAB
     Route: 058
  174. OMALIZUMAB [Suspect]
     Active Substance: OMALIZUMAB
     Route: 058
  175. OMALIZUMAB [Suspect]
     Active Substance: OMALIZUMAB
     Route: 058
  176. OMALIZUMAB [Suspect]
     Active Substance: OMALIZUMAB
     Route: 058
  177. OMALIZUMAB [Suspect]
     Active Substance: OMALIZUMAB
     Route: 058
  178. OMALIZUMAB [Suspect]
     Active Substance: OMALIZUMAB
     Route: 058
  179. OMALIZUMAB [Suspect]
     Active Substance: OMALIZUMAB
     Route: 058
  180. OMALIZUMAB [Suspect]
     Active Substance: OMALIZUMAB
     Route: 058
  181. OMALIZUMAB [Suspect]
     Active Substance: OMALIZUMAB
     Route: 058
  182. OMALIZUMAB [Suspect]
     Active Substance: OMALIZUMAB
     Route: 058
  183. OMALIZUMAB [Suspect]
     Active Substance: OMALIZUMAB
     Route: 058
  184. OMALIZUMAB [Suspect]
     Active Substance: OMALIZUMAB
     Route: 058
  185. OMALIZUMAB [Suspect]
     Active Substance: OMALIZUMAB
     Route: 058
  186. OMALIZUMAB [Suspect]
     Active Substance: OMALIZUMAB
     Route: 058
  187. OMALIZUMAB [Suspect]
     Active Substance: OMALIZUMAB
     Route: 058
  188. OMALIZUMAB [Suspect]
     Active Substance: OMALIZUMAB
     Route: 058
  189. AVASTIN [Concomitant]
     Active Substance: BEVACIZUMAB
     Indication: Product used for unknown indication
     Route: 047
  190. AVASTIN [Concomitant]
     Active Substance: BEVACIZUMAB
     Route: 058
  191. AVASTIN [Concomitant]
     Active Substance: BEVACIZUMAB
     Indication: Product used for unknown indication
     Route: 065
  192. AVASTIN [Concomitant]
     Active Substance: BEVACIZUMAB
     Route: 042
  193. BUDESONIDE [Concomitant]
     Active Substance: BUDESONIDE
     Indication: Product used for unknown indication
  194. BUDESONIDE [Concomitant]
     Active Substance: BUDESONIDE
     Route: 065
  195. BUDESONIDE [Concomitant]
     Active Substance: BUDESONIDE
     Indication: Product used for unknown indication
  196. BUDESONIDE\FORMOTEROL FUMARATE [Concomitant]
     Active Substance: BUDESONIDE\FORMOTEROL FUMARATE
     Indication: Product used for unknown indication
  197. BUDESONIDE\FORMOTEROL FUMARATE [Concomitant]
     Active Substance: BUDESONIDE\FORMOTEROL FUMARATE
  198. CEFUROXIME [Concomitant]
     Active Substance: CEFUROXIME
     Indication: Product used for unknown indication
     Route: 065
  199. CEFUROXIME [Concomitant]
     Active Substance: CEFUROXIME
  200. DEXAMETHASONE [Concomitant]
     Active Substance: DEXAMETHASONE
     Route: 065
  201. DOMPERIDONE [Concomitant]
     Active Substance: DOMPERIDONE
     Indication: Product used for unknown indication
     Route: 065
  202. FORMOTEROL FUMARATE [Concomitant]
     Active Substance: FORMOTEROL FUMARATE
     Indication: Product used for unknown indication
     Route: 065
  203. FORMOTEROL FUMARATE [Concomitant]
     Active Substance: FORMOTEROL FUMARATE
     Route: 065
  204. FUROSEMIDE [Concomitant]
     Active Substance: FUROSEMIDE
     Indication: Product used for unknown indication
     Route: 048
  205. FUROSEMIDE [Concomitant]
     Active Substance: FUROSEMIDE
     Route: 065
  206. FUROSEMIDE [Concomitant]
     Active Substance: FUROSEMIDE
     Indication: Product used for unknown indication
     Route: 065
  207. FUROSEMIDE [Concomitant]
     Active Substance: FUROSEMIDE
     Route: 048
  208. METFORMIN [Concomitant]
     Active Substance: METFORMIN HYDROCHLORIDE
     Indication: Product used for unknown indication
     Route: 065
  209. METFORMIN [Concomitant]
     Active Substance: METFORMIN HYDROCHLORIDE
     Route: 048
  210. METFORMIN [Concomitant]
     Active Substance: METFORMIN HYDROCHLORIDE
     Route: 065
  211. METFORMIN [Concomitant]
     Active Substance: METFORMIN HYDROCHLORIDE
     Route: 048
  212. MOMETASONE [Concomitant]
     Active Substance: MOMETASONE
     Indication: Product used for unknown indication
     Route: 065
  213. MOMETASONE [Concomitant]
     Active Substance: MOMETASONE
  214. PANTOPRAZOLE [Concomitant]
     Active Substance: PANTOPRAZOLE
     Indication: Product used for unknown indication
     Route: 065
  215. PANTOPRAZOLE [Concomitant]
     Active Substance: PANTOPRAZOLE
     Route: 048
  216. PANTOPRAZOLE [Concomitant]
     Active Substance: PANTOPRAZOLE
     Indication: Product used for unknown indication
     Route: 065
  217. PANTOPRAZOLE SODIUM [Concomitant]
     Active Substance: PANTOPRAZOLE SODIUM
     Indication: Product used for unknown indication
     Route: 048
  218. PANTOPRAZOLE SODIUM [Concomitant]
     Active Substance: PANTOPRAZOLE SODIUM
     Route: 065
  219. PANTOPRAZOLE SODIUM [Concomitant]
     Active Substance: PANTOPRAZOLE SODIUM
     Route: 048
  220. PANTOPRAZOLE SODIUM [Concomitant]
     Active Substance: PANTOPRAZOLE SODIUM
     Route: 065
  221. PRAVASTATIN [Concomitant]
     Active Substance: PRAVASTATIN
     Indication: Product used for unknown indication
     Route: 048
  222. PRAVASTATIN [Concomitant]
     Active Substance: PRAVASTATIN
     Route: 065
  223. PRAVASTATIN [Concomitant]
     Active Substance: PRAVASTATIN
     Indication: Product used for unknown indication
     Route: 048
  224. RANITIDINE [Concomitant]
     Active Substance: RANITIDINE
     Indication: Product used for unknown indication
     Route: 065
  225. SEMAGLUTIDE [Concomitant]
     Active Substance: SEMAGLUTIDE
     Indication: Blood glucose fluctuation
     Dosage: 1 DOSAGE FORM, 1 EVERY 1 WEEKS
     Route: 065
  226. SINGULAIR [Concomitant]
     Active Substance: MONTELUKAST SODIUM
     Indication: Product used for unknown indication
     Route: 065
  227. VENTOLIN [Concomitant]
     Active Substance: ALBUTEROL SULFATE
     Indication: Product used for unknown indication
  228. VENTOLIN [Concomitant]
     Active Substance: ALBUTEROL SULFATE
     Route: 065
  229. VENTOLIN [Concomitant]
     Active Substance: ALBUTEROL SULFATE
  230. VENTOLIN [Concomitant]
     Active Substance: ALBUTEROL SULFATE
     Indication: Product used for unknown indication
  231. ZOPICLONE [Concomitant]
     Active Substance: ZOPICLONE
     Indication: Product used for unknown indication
     Route: 048
  232. ZOPICLONE [Concomitant]
     Active Substance: ZOPICLONE
     Route: 065
  233. ZOPICLONE [Concomitant]
     Active Substance: ZOPICLONE
     Route: 048

REACTIONS (59)
  - Aphthous ulcer [Not Recovered/Not Resolved]
  - Contusion [Not Recovered/Not Resolved]
  - Eyelid ptosis [Not Recovered/Not Resolved]
  - Fall [Not Recovered/Not Resolved]
  - Feeling abnormal [Not Recovered/Not Resolved]
  - Foreign body sensation in eyes [Not Recovered/Not Resolved]
  - Hypertensive crisis [Not Recovered/Not Resolved]
  - Injury [Not Recovered/Not Resolved]
  - Lethargy [Not Recovered/Not Resolved]
  - Limb discomfort [Not Recovered/Not Resolved]
  - Lipoma [Not Recovered/Not Resolved]
  - Loss of consciousness [Not Recovered/Not Resolved]
  - Mobility decreased [Not Recovered/Not Resolved]
  - Oxygen saturation decreased [Not Recovered/Not Resolved]
  - Paralysis [Not Recovered/Not Resolved]
  - Procedural pain [Not Recovered/Not Resolved]
  - Productive cough [Not Recovered/Not Resolved]
  - Sinus congestion [Not Recovered/Not Resolved]
  - Sputum discoloured [Not Recovered/Not Resolved]
  - Symptom recurrence [Not Recovered/Not Resolved]
  - Throat clearing [Not Recovered/Not Resolved]
  - Upper-airway cough syndrome [Not Recovered/Not Resolved]
  - Urinary incontinence [Not Recovered/Not Resolved]
  - Vaccination site pain [Not Recovered/Not Resolved]
  - Weight increased [Not Recovered/Not Resolved]
  - Eye haemorrhage [Not Recovered/Not Resolved]
  - Anaphylactic reaction [Not Recovered/Not Resolved]
  - Anxiety [Not Recovered/Not Resolved]
  - Asthenia [Not Recovered/Not Resolved]
  - Asthma [Not Recovered/Not Resolved]
  - Back pain [Not Recovered/Not Resolved]
  - Bell^s palsy [Not Recovered/Not Resolved]
  - Chills [Not Recovered/Not Resolved]
  - Cough [Not Recovered/Not Resolved]
  - COVID-19 [Not Recovered/Not Resolved]
  - Decreased appetite [Not Recovered/Not Resolved]
  - Discomfort [Not Recovered/Not Resolved]
  - Dizziness [Not Recovered/Not Resolved]
  - Dyspnoea [Not Recovered/Not Resolved]
  - Fatigue [Not Recovered/Not Resolved]
  - Headache [Not Recovered/Not Resolved]
  - Hypoaesthesia [Not Recovered/Not Resolved]
  - Illness [Not Recovered/Not Resolved]
  - Injection site bruising [Not Recovered/Not Resolved]
  - Injection site discomfort [Not Recovered/Not Resolved]
  - Injection site pain [Not Recovered/Not Resolved]
  - Injection site swelling [Not Recovered/Not Resolved]
  - Lacrimation increased [Not Recovered/Not Resolved]
  - Malaise [Not Recovered/Not Resolved]
  - Myalgia [Not Recovered/Not Resolved]
  - Oropharyngeal pain [Not Recovered/Not Resolved]
  - Pain [Not Recovered/Not Resolved]
  - Paranasal sinus discomfort [Not Recovered/Not Resolved]
  - Pyrexia [Not Recovered/Not Resolved]
  - Rhinorrhoea [Not Recovered/Not Resolved]
  - Tinnitus [Not Recovered/Not Resolved]
  - Weight decreased [Not Recovered/Not Resolved]
  - Visual impairment [Not Recovered/Not Resolved]
  - Inappropriate schedule of product administration [Not Recovered/Not Resolved]
